FAERS Safety Report 16688202 (Version 1)
Quarter: 2019Q3

REPORT INFORMATION
  Report Type: Spontaneous
  Country: US (occurrence: US)
  Receive Date: 20190624
  Receipt Date: 20190624
  Transmission Date: 20191004
  Serious: Yes (Life-Threatening, Hospitalization, Other)
  Sender: FDA-Public Use
  Company Number: None

PATIENT
  Age: 64 Year
  Sex: Female
  Weight: 90.72 kg

DRUGS (1)
  1. HYDRALAZINE [Suspect]
     Active Substance: HYDRALAZINE HYDROCHLORIDE

REACTIONS (7)
  - Lupus-like syndrome [None]
  - Drug ineffective [None]
  - Blood pressure inadequately controlled [None]
  - Atrioventricular block [None]
  - Vascular device user [None]
  - Cataract [None]
  - Hypertension [None]

NARRATIVE: CASE EVENT DATE: 20181213
